FAERS Safety Report 9373084 (Version 1)
Quarter: 2013Q2

REPORT INFORMATION
  Report Type: Spontaneous
  Country: FR (occurrence: FR)
  Receive Date: 20130627
  Receipt Date: 20130627
  Transmission Date: 20140414
  Serious: Yes (Hospitalization)
  Sender: FDA-Public Use
  Company Number: FR-PFIZER INC-2013186765

PATIENT
  Age: 85 Year
  Sex: Female

DRUGS (16)
  1. ZYVOXID [Suspect]
     Indication: INFECTION
     Dosage: 2 DF, UNK
     Route: 048
     Dates: start: 201305, end: 20130531
  2. MERONEM [Suspect]
     Indication: INFECTION
     Dosage: 2 G, 3X/DAY
     Route: 042
     Dates: start: 201305, end: 20130527
  3. VANCOMYCIN [Concomitant]
  4. HEPARIN SODIUM [Concomitant]
  5. ARANESP [Concomitant]
  6. CALCIDOSE [Concomitant]
  7. CORDARONE [Concomitant]
  8. HEMIGOXINE NATIVELLE [Concomitant]
  9. SERESTA [Concomitant]
  10. TRANXENE [Concomitant]
  11. INEXIUM [Concomitant]
  12. LASILIX [Concomitant]
  13. LYRICA [Concomitant]
  14. LYSANXIA [Concomitant]
  15. REPAGLINIDE [Concomitant]
  16. TOPALGIC [Concomitant]

REACTIONS (3)
  - Confusional state [Recovered/Resolved]
  - Disorientation [Recovered/Resolved]
  - Fall [Recovered/Resolved]
